FAERS Safety Report 13458967 (Version 2)
Quarter: 2017Q2

REPORT INFORMATION
  Report Type: Spontaneous
  Country: US (occurrence: US)
  Receive Date: 20170419
  Receipt Date: 20170509
  Transmission Date: 20170830
  Serious: Yes (Death, Life-Threatening, Hospitalization)
  Sender: FDA-Public Use
  Company Number: US-TORRENT-00002679

PATIENT
  Age: 28 Year
  Sex: Female

DRUGS (2)
  1. VERAPAMIL [Suspect]
     Active Substance: VERAPAMIL HYDROCHLORIDE
  2. TRAZODONE [Suspect]
     Active Substance: TRAZODONE HYDROCHLORIDE

REACTIONS (7)
  - Hypotension [Unknown]
  - Hypoxia [Unknown]
  - Cardiogenic shock [Not Recovered/Not Resolved]
  - Respiratory failure [Unknown]
  - Bradycardia [Unknown]
  - Overdose [Fatal]
  - Pulseless electrical activity [Fatal]
